FAERS Safety Report 11297445 (Version 2)
Quarter: 2015Q3

REPORT INFORMATION
  Report Type: Spontaneous
  Country: US (occurrence: US)
  Receive Date: 20150722
  Receipt Date: 20150916
  Transmission Date: 20151125
  Serious: No
  Sender: FDA-Public Use
  Company Number: US-ELI_LILLY_AND_COMPANY-US200805004334

PATIENT
  Age: 67 Year
  Sex: Female

DRUGS (4)
  1. HUMATROPE [Suspect]
     Active Substance: SOMATROPIN
     Indication: HYPOTHALAMO-PITUITARY DISORDER
     Dosage: 0.1 MG, UNK
     Dates: start: 200707
  2. FORTEO [Suspect]
     Active Substance: TERIPARATIDE
     Indication: OSTEOPOROSIS
     Dosage: 20 UG, DAILY (1/D)
     Dates: start: 200704, end: 20080421
  3. HUMATROPE [Suspect]
     Active Substance: SOMATROPIN
     Dosage: 0.3 MG, DAILY (1/D)
     Dates: start: 200707, end: 20080421
  4. DILANTIN [Concomitant]
     Active Substance: PHENYTOIN
     Indication: BRAIN INJURY

REACTIONS (1)
  - Pain in extremity [Not Recovered/Not Resolved]

NARRATIVE: CASE EVENT DATE: 20080519
